FAERS Safety Report 4650366-2 (Version None)
Quarter: 2005Q2

REPORT INFORMATION
  Report Type: 
  Country: None (occurrence: None)
  Receive Date: 20050428
  Receipt Date: 20050415
  Transmission Date: 20051028
  Serious: Yes (Hospitalization, Other)
  Sender: FDA-Public Use
  Company Number: 2005-01306

PATIENT
  Age: 89 Year
  Sex: Female

DRUGS (4)
  1. OXYTROL [Suspect]
     Indication: URINARY INCONTINENCE
     Dosage: SEE IMAGE
     Route: 062
     Dates: start: 20050323, end: 20050329
  2. OXYTROL [Suspect]
     Indication: URINARY INCONTINENCE
     Dosage: SEE IMAGE
     Route: 062
     Dates: start: 20050329, end: 20050404
  3. OXYTROL [Suspect]
     Indication: URINARY INCONTINENCE
     Dosage: SEE IMAGE
     Route: 062
     Dates: start: 20050404, end: 20050409
  4. OXYTROL [Suspect]
     Indication: URINARY INCONTINENCE
     Dosage: SEE IMAGE
     Route: 062
     Dates: start: 20050409, end: 20050412

REACTIONS (8)
  - APHASIA [None]
  - DEPRESSED LEVEL OF CONSCIOUSNESS [None]
  - DISORIENTATION [None]
  - DYSARTHRIA [None]
  - MENTAL DISORDER [None]
  - OVERDOSE [None]
  - PRESCRIBED OVERDOSE [None]
  - TRISMUS [None]
